FAERS Safety Report 16816849 (Version 1)
Quarter: 2019Q3

REPORT INFORMATION
  Report Type: Spontaneous
  Country: US (occurrence: US)
  Receive Date: 20190917
  Receipt Date: 20190917
  Transmission Date: 20191005
  Serious: Yes (Other)
  Sender: FDA-Public Use
  Company Number: US-TEVA-2019-US-1107411

PATIENT
  Sex: Female

DRUGS (1)
  1. PREDNISONE. [Suspect]
     Active Substance: PREDNISONE
     Dosage: FOR 2 WEEKS
     Route: 048

REACTIONS (3)
  - Ventricular extrasystoles [Unknown]
  - Pain [Unknown]
  - Gastrointestinal haemorrhage [Unknown]
